FAERS Safety Report 9972268 (Version 2)
Quarter: 2014Q1

REPORT INFORMATION
  Report Type: Report from Study
  Country: US (occurrence: US)
  Receive Date: 20140306
  Receipt Date: 20140306
  Transmission Date: 20141002
  Serious: No
  Sender: FDA-Public Use
  Company Number: US-ABBVIE-12P-163-0976834-00

PATIENT
  Age: 64 Year
  Sex: Female

DRUGS (7)
  1. HUMIRA [Suspect]
     Indication: PSORIASIS
     Dates: end: 201207
  2. HUMIRA [Suspect]
     Route: 058
  3. CLONAZEPAM [Concomitant]
     Indication: INSOMNIA
     Dosage: DAILY
  4. AMITRIPTYLINE [Concomitant]
     Indication: INSOMNIA
     Dosage: DAILY
  5. PAROXETINE [Concomitant]
     Indication: INSOMNIA
     Dosage: DAILY
  6. ZOLPIDEM [Concomitant]
     Indication: INSOMNIA
     Dosage: DAILY
  7. LISINOPRIL [Concomitant]
     Indication: HYPERTENSION

REACTIONS (3)
  - Impaired healing [Recovered/Resolved]
  - Limb injury [Recovering/Resolving]
  - Psoriasis [Not Recovered/Not Resolved]
